FAERS Safety Report 6111199-3 (Version None)
Quarter: 2009Q1

REPORT INFORMATION
  Report Type: 
  Country: None (occurrence: None)
  Receive Date: 20090309
  Receipt Date: 20090309
  Transmission Date: 20090719
  Serious: Yes (Life-Threatening, Hospitalization)
  Sender: FDA-Public Use
  Company Number: None

PATIENT
  Sex: Male
  Weight: 89 kg

DRUGS (15)
  1. SIROLIMUS [Suspect]
     Indication: IMMUNOSUPPRESSION
     Dosage: 1MG QD PO
     Route: 048
     Dates: start: 20040414, end: 20070118
  2. SIROLIMUS [Suspect]
     Indication: LUNG TRANSPLANT
     Dosage: 1MG QD PO
     Route: 048
     Dates: start: 20040414, end: 20070118
  3. PROGRAF [Concomitant]
  4. PREDNISONE [Concomitant]
  5. SEPTRA DS [Concomitant]
  6. KEPPRA [Concomitant]
  7. NEURONTIN [Concomitant]
  8. CALCIUM CARB [Concomitant]
  9. VIT D [Concomitant]
  10. MG OXIDE [Concomitant]
  11. INSULATARD NPH HUMAN [Concomitant]
  12. REGULAR INSULIN [Concomitant]
  13. LOPRESSOR [Concomitant]
  14. CLARITIN [Concomitant]
  15. PRILOSEC [Concomitant]

REACTIONS (3)
  - PULMONARY EMBOLISM [None]
  - SERUM SICKNESS [None]
  - TRANSPLANT REJECTION [None]
